FAERS Safety Report 11680610 (Version 2)
Quarter: 2015Q4

REPORT INFORMATION
  Report Type: Spontaneous
  Country: US (occurrence: US)
  Receive Date: 20151027
  Receipt Date: 20151104
  Transmission Date: 20160304
  Serious: No
  Sender: FDA-Public Use
  Company Number: US-ELI_LILLY_AND_COMPANY-US201001003618

PATIENT
  Sex: Female

DRUGS (8)
  1. VITAMIN D [Concomitant]
     Active Substance: CHOLECALCIFEROL
  2. FLAXSEED [Concomitant]
     Active Substance: FLAX SEED
  3. MUCINEX DM [Concomitant]
     Active Substance: DEXTROMETHORPHAN HYDROBROMIDE\GUAIFENESIN
     Dosage: 1200 MG, UNKNOWN
     Dates: start: 20100110
  4. CALCIUM [Concomitant]
     Active Substance: CALCIUM
  5. FORTEO [Suspect]
     Active Substance: TERIPARATIDE
     Dosage: 20 UG, DAILY (1/D)
     Route: 065
  6. OLIVE LEAVES EXTRACT [Concomitant]
     Indication: NASOPHARYNGITIS
     Dosage: UNK, UNKNOWN
  7. FORTEO [Suspect]
     Active Substance: TERIPARATIDE
     Dosage: 20 UG, DAILY (1/D)
     Dates: start: 20110115
  8. FORTEO [Suspect]
     Active Substance: TERIPARATIDE
     Indication: OSTEOPOROSIS
     Dosage: 20 UG, DAILY (1/D)
     Route: 065
     Dates: start: 200908

REACTIONS (7)
  - Toothache [Unknown]
  - Paranasal sinus discomfort [Unknown]
  - Pain in jaw [Unknown]
  - Intentional product misuse [Unknown]
  - Gingival pain [Unknown]
  - Gingivitis [Unknown]
  - Tooth abscess [Unknown]

NARRATIVE: CASE EVENT DATE: 2009
